FAERS Safety Report 8367668-9 (Version None)
Quarter: 2012Q2

REPORT INFORMATION
  Report Type: 
  Country: None (occurrence: None)
  Receive Date: 20120517
  Receipt Date: 20120109
  Transmission Date: 20120825
  Serious: Yes (Death, Other)
  Sender: FDA-Public Use
  Company Number: PHHY2011NL115133

PATIENT
  Sex: Female

DRUGS (3)
  1. ZOMETA [Suspect]
     Indication: BREAST CANCER METASTATIC
     Dosage: 4 MG/ 5ML ONCE PER 28 DAYS
     Dates: start: 20080213
  2. ZOMETA [Suspect]
     Dosage: 4 MG/5 ML ONCE PER 28 DAYS
     Dates: start: 20111108
  3. ZOMETA [Suspect]
     Dosage: 4 MG/ 5 ML ONCE PER 28 DAYS
     Dates: start: 20111216

REACTIONS (5)
  - TERMINAL STATE [None]
  - GENERAL PHYSICAL HEALTH DETERIORATION [None]
  - NEOPLASM PROGRESSION [None]
  - METASTASES TO LIVER [None]
  - NEOPLASM MALIGNANT [None]
